FAERS Safety Report 19639598 (Version 3)
Quarter: 2021Q3

REPORT INFORMATION
  Report Type: Spontaneous
  Country: US (occurrence: US)
  Receive Date: 20210730
  Receipt Date: 20210914
  Transmission Date: 20211014
  Serious: Yes (Other)
  Sender: FDA-Public Use
  Company Number: US-PFIZER INC-202100917394

PATIENT

DRUGS (1)
  1. DEXTRAN [Suspect]
     Active Substance: DEXTRAN
     Dosage: UNK

REACTIONS (1)
  - Anaphylactic reaction [Unknown]
